FAERS Safety Report 13959351 (Version 1)
Quarter: 2017Q3

REPORT INFORMATION
  Report Type: Spontaneous
  Country: US (occurrence: US)
  Receive Date: 20170911
  Receipt Date: 20170911
  Transmission Date: 20171128
  Serious: No
  Sender: FDA-Public Use
  Company Number: US-LEXICON PHARMACEUTICALS, INC-17-1606-00777

PATIENT
  Sex: Female

DRUGS (17)
  1. TELOTRISTAT ETHYL [Suspect]
     Active Substance: TELOTRISTAT ETHYL
     Indication: CARCINOID TUMOUR
     Route: 048
     Dates: start: 20170511
  2. SYNTHROID [Concomitant]
  3. VITAMIN B12 [Concomitant]
  4. FERROUS SULFATE [Concomitant]
  5. TELOTRISTAT ETHYL [Suspect]
     Active Substance: TELOTRISTAT ETHYL
     Indication: ACUTE KIDNEY INJURY
  6. TELOTRISTAT ETHYL [Suspect]
     Active Substance: TELOTRISTAT ETHYL
     Indication: FIBROMYALGIA
  7. SUTENT [Concomitant]
  8. POTASSIUM [Concomitant]
     Active Substance: POTASSIUM
  9. VITAMIN D [Concomitant]
  10. GINGKO [Concomitant]
     Active Substance: GINKGO
  11. LOPERAMIDE [Concomitant]
     Active Substance: LOPERAMIDE
  12. METOPROLOL [Concomitant]
  13. TOPAMAX [Concomitant]
     Active Substance: TOPIRAMATE
  14. CITALOPRAM [Concomitant]
  15. HYDROCHLOROTHIAZIDE [Concomitant]
  16. LOW DOSE ASPIRIN [Concomitant]
     Active Substance: ASPIRIN
  17. SOMATULINE DEPOT [Concomitant]
     Active Substance: LANREOTIDE ACETATE

REACTIONS (1)
  - Constipation [Unknown]

NARRATIVE: CASE EVENT DATE: 2017
